FAERS Safety Report 6067966-8 (Version None)
Quarter: 2009Q1

REPORT INFORMATION
  Report Type: 
  Country: None (occurrence: None)
  Receive Date: 20090206
  Receipt Date: 20090130
  Transmission Date: 20090719
  Serious: Yes (Hospitalization, Other)
  Sender: FDA-Public Use
  Company Number: JP-JNJFOC-20090200245

PATIENT
  Sex: Male

DRUGS (7)
  1. CRAVIT [Suspect]
     Indication: LUNG ABSCESS
     Route: 048
  2. ALDACTONE [Concomitant]
     Indication: HYPOKALAEMIA
     Route: 048
  3. THYRADIN-S [Concomitant]
     Indication: HYPOTHYROIDISM
     Route: 048
  4. NEUROVITAN [Concomitant]
     Indication: VITAMIN B COMPLEX DEFICIENCY
     Dosage: 1 DF, 1 IN 1 DAY
     Route: 048
  5. RASTINON [Concomitant]
     Indication: DIABETES MELLITUS
     Route: 048
  6. ROCEPHIN [Concomitant]
     Indication: LUNG ABSCESS
     Route: 042
  7. DALACIN [Concomitant]
     Indication: LUNG ABSCESS
     Route: 041

REACTIONS (1)
  - INTERSTITIAL LUNG DISEASE [None]
